FAERS Safety Report 13131555 (Version 2)
Quarter: 2017Q1

REPORT INFORMATION
  Report Type: Spontaneous
  Country: US (occurrence: US)
  Receive Date: 20170119
  Receipt Date: 20170208
  Transmission Date: 20170428
  Serious: Yes (Hospitalization)
  Sender: FDA-Public Use
  Company Number: US-BAYER-2017-006743

PATIENT
  Age: 61 Year
  Sex: Female

DRUGS (23)
  1. LYRICA [Concomitant]
     Active Substance: PREGABALIN
  2. FUROSEMIDE. [Concomitant]
     Active Substance: FUROSEMIDE
  3. PROAIR HFA [Concomitant]
     Active Substance: ALBUTEROL SULFATE
  4. CALCIUM +VIT D [Concomitant]
     Active Substance: CALCIUM\VITAMIN D
  5. DICYCLOMINE [Concomitant]
     Active Substance: DICYCLOMINE HYDROCHLORIDE
  6. BUSPIRONE [Concomitant]
     Active Substance: BUSPIRONE HYDROCHLORIDE
  7. AMBRISENTAN [Suspect]
     Active Substance: AMBRISENTAN
     Indication: PULMONARY HYPERTENSION
     Dosage: 5 MG, QD
     Route: 065
  8. WARFARIN [Concomitant]
     Active Substance: WARFARIN
  9. ADEMPAS [Suspect]
     Active Substance: RIOCIGUAT
     Indication: PRODUCT USED FOR UNKNOWN INDICATION
     Dosage: UNK
     Route: 065
  10. MONTELUKAST [Concomitant]
     Active Substance: MONTELUKAST SODIUM
  11. SERTRALINE [Concomitant]
     Active Substance: SERTRALINE HYDROCHLORIDE
  12. LEVOTHYROXINE. [Concomitant]
     Active Substance: LEVOTHYROXINE
  13. FAMCICLOVIR. [Concomitant]
     Active Substance: FAMCICLOVIR
  14. APIXABAN [Concomitant]
     Active Substance: APIXABAN
     Dosage: UNK
  15. OXYCODONE [Concomitant]
     Active Substance: OXYCODONE
  16. ATENOLOL. [Concomitant]
     Active Substance: ATENOLOL
  17. WELLBUTRIN [Concomitant]
     Active Substance: BUPROPION HYDROCHLORIDE
  18. PROMETHAZINE [Concomitant]
     Active Substance: PROMETHAZINE\PROMETHAZINE HYDROCHLORIDE
  19. LANTUS [Concomitant]
     Active Substance: INSULIN GLARGINE
  20. OMEPRAZOLE. [Concomitant]
     Active Substance: OMEPRAZOLE
  21. TIZANIDINE. [Concomitant]
     Active Substance: TIZANIDINE
  22. NASONEX [Concomitant]
     Active Substance: MOMETASONE FUROATE
  23. ADVAIR HFA [Concomitant]
     Active Substance: FLUTICASONE PROPIONATE\SALMETEROL XINAFOATE

REACTIONS (14)
  - Internal haemorrhage [None]
  - Headache [None]
  - Fatigue [Not Recovered/Not Resolved]
  - Product use issue [Not Recovered/Not Resolved]
  - Nausea [Not Recovered/Not Resolved]
  - Fibromyalgia [Not Recovered/Not Resolved]
  - Concussion [Unknown]
  - Dyspnoea [None]
  - Peripheral swelling [None]
  - Asthenia [Not Recovered/Not Resolved]
  - Migraine [Not Recovered/Not Resolved]
  - Abdominal distension [None]
  - Abnormal weight gain [None]
  - Fall [Recovered/Resolved]
